FAERS Safety Report 20187563 (Version 3)
Quarter: 2022Q2

REPORT INFORMATION
  Report Type: Report from Study
  Country: US (occurrence: US)
  Receive Date: 20211215
  Receipt Date: 20220428
  Transmission Date: 20220721
  Serious: No
  Sender: FDA-Public Use
  Company Number: US-BIOVITRUM-2021US11969

PATIENT
  Sex: Female

DRUGS (2)
  1. KINERET [Suspect]
     Active Substance: ANAKINRA
     Indication: Rheumatoid arthritis
     Route: 058
     Dates: start: 20211111
  2. PREDNISONE [Suspect]
     Active Substance: PREDNISONE
     Route: 065

REACTIONS (8)
  - Gait disturbance [Unknown]
  - Pain [Unknown]
  - Weight increased [Unknown]
  - Eye swelling [Unknown]
  - Illness [Unknown]
  - Serum ferritin increased [Unknown]
  - Drug ineffective [Unknown]
  - Product dose omission issue [Unknown]
